FAERS Safety Report 9587126 (Version 1)
Quarter: 2013Q4

REPORT INFORMATION
  Report Type: Spontaneous
  Country: US (occurrence: US)
  Receive Date: 20131003
  Receipt Date: 20131003
  Transmission Date: 20140711
  Serious: No
  Sender: FDA-Public Use
  Company Number: US-009507513-1310USA000410

PATIENT
  Sex: Male

DRUGS (4)
  1. CLARITIN LIQUIGELS [Suspect]
     Indication: HYPERSENSITIVITY
     Dosage: UNK, ONCE
     Route: 048
  2. CLARITIN LIQUIGELS [Suspect]
     Indication: SNEEZING
  3. CLARITIN LIQUIGELS [Suspect]
     Indication: EYE PRURITUS
  4. CLARITIN LIQUIGELS [Suspect]
     Indication: THROAT IRRITATION

REACTIONS (2)
  - Increased appetite [Unknown]
  - Somnolence [Unknown]
